FAERS Safety Report 5367981-3 (Version None)
Quarter: 2007Q2

REPORT INFORMATION
  Report Type: 
  Country: None (occurrence: None)
  Receive Date: 20070622
  Receipt Date: 20070611
  Transmission Date: 20071010
  Serious: Yes (Hospitalization)
  Sender: FDA-Public Use
  Company Number: ES-PFIZER INC-2007047153

PATIENT
  Age: 87 Year
  Sex: Female

DRUGS (6)
  1. ALDACTONE [Suspect]
     Indication: HYPERTENSION
     Route: 048
  2. ENALAPRIL [Interacting]
     Indication: HYPERTENSION
     Dosage: DAILY DOSE:20MG
     Route: 048
  3. SEGURIL [Interacting]
     Indication: HYPERTENSION
     Route: 048
  4. COROPRES [Concomitant]
     Indication: HYPERTENSION
     Dosage: DAILY DOSE:25MG
     Route: 048
  5. OXIS [Concomitant]
     Indication: ASTHMA
     Route: 055
  6. SPIRIVA [Concomitant]
     Indication: ASTHMA
     Route: 055

REACTIONS (3)
  - DRUG INTERACTION [None]
  - HYPERKALAEMIA [None]
  - RENAL FAILURE ACUTE [None]
